FAERS Safety Report 5348154-7 (Version None)
Quarter: 2007Q2

REPORT INFORMATION
  Report Type: 
  Country: None (occurrence: None)
  Receive Date: 20070606
  Receipt Date: 20070525
  Transmission Date: 20071010
  Serious: Yes (Hospitalization, Other)
  Sender: FDA-Public Use
  Company Number: US-PFIZER INC-2007034161

PATIENT
  Sex: Female
  Weight: 76.2 kg

DRUGS (2)
  1. LYRICA [Suspect]
     Indication: NEUROPATHY PERIPHERAL
     Route: 048
  2. DILANTIN [Concomitant]

REACTIONS (1)
  - CONVULSION [None]
